FAERS Safety Report 15145413 (Version 4)
Quarter: 2019Q4

REPORT INFORMATION
  Report Type: Spontaneous
  Country: US (occurrence: US)
  Receive Date: 20180713
  Receipt Date: 20191121
  Transmission Date: 20200122
  Serious: No
  Sender: FDA-Public Use
  Company Number: US-INTERCEPT-PMOCA2018000773

PATIENT
  Age: 73 Year
  Sex: Female

DRUGS (28)
  1. CINNAMON. [Concomitant]
     Active Substance: CINNAMON
     Dosage: 500 MG, UNK
  2. GLUCOSAMINE + CHONDROITIN [Concomitant]
  3. BIOTIN [Concomitant]
     Active Substance: BIOTIN
     Dosage: 10000 MCG, UNK
  4. CLONAZEPAM. [Concomitant]
     Active Substance: CLONAZEPAM
     Dosage: 0.5 MG, UNK
  5. KRILL OIL 1000 [Concomitant]
     Dosage: 130 MG, UNK
  6. COENZYME Q10 [Concomitant]
     Active Substance: UBIDECARENONE
     Dosage: 100 MG, UNK
  7. FISH OIL 100 [Concomitant]
     Dosage: 150 MG, UNK
  8. ATORVASTATIN CALCIUM. [Concomitant]
     Active Substance: ATORVASTATIN CALCIUM
     Dosage: 10 MG, UNK
  9. URSODIOL. [Concomitant]
     Active Substance: URSODIOL
     Dosage: 250 MG, UNK
  10. ZINC 15 [Concomitant]
     Dosage: 66 MG, UNK
  11. FLAXSEED [Concomitant]
     Active Substance: FLAX SEED
     Dosage: 1000 MG, UNK
  12. VITAMIN C [Concomitant]
     Active Substance: ASCORBIC ACID
     Dosage: 1000 MG, UNK
  13. CALCIUM 500 [Concomitant]
     Dosage: 1250 UNK, UNK
  14. PROBIOTIC ACIDOPHILUS [Concomitant]
     Active Substance: LACTOBACILLUS ACIDOPHILUS
     Dosage: 100 MG, UNK
  15. OCALIVA [Suspect]
     Active Substance: OBETICHOLIC ACID
     Indication: PRIMARY BILIARY CHOLANGITIS
     Dosage: 5 MG, QD
     Route: 048
     Dates: start: 20180506
  16. CITALOPRAM [Concomitant]
     Active Substance: CITALOPRAM HYDROBROMIDE
     Dosage: 10 MG, UNK
  17. VITAMIN E NOS [Concomitant]
     Active Substance: .ALPHA.-TOCOPHEROL
     Dosage: 1000 UT, UNK
  18. GARLIC. [Concomitant]
     Active Substance: GARLIC
     Dosage: 100 MG, UNK
  19. TURMERIC [Concomitant]
     Active Substance: HERBALS\TURMERIC
     Dosage: 500 MG, UNK
  20. VITAMIN B12 [Concomitant]
     Active Substance: CYANOCOBALAMIN
     Dosage: 1000 MCG, UNK
  21. FOLIC ACID. [Concomitant]
     Active Substance: FOLIC ACID
     Dosage: 0.4 MG, UNK
  22. MULTIVITAMINUM [Concomitant]
     Active Substance: VITAMINS
  23. ZYRTEC [Concomitant]
     Active Substance: CETIRIZINE HYDROCHLORIDE
     Dosage: 10 MG, UNK
  24. COD LIVER OIL [Concomitant]
     Active Substance: COD LIVER OIL
  25. LYSINE [Concomitant]
     Active Substance: LYSINE
     Dosage: 1000 MG, UNK
  26. MILK THISTLE PLUS [Concomitant]
     Active Substance: DIETARY SUPPLEMENT\HERBALS\MILK THISTLE
     Dosage: 140 MG, UNK
  27. CRANBERRY. [Concomitant]
     Active Substance: CRANBERRY
     Dosage: 200 MG, UNK
  28. MAGNESIUM [Concomitant]
     Active Substance: MAGNESIUM
     Dosage: 100 MG, UNK

REACTIONS (9)
  - Fatigue [Not Recovered/Not Resolved]
  - Abdominal tenderness [Unknown]
  - Depressed mood [Not Recovered/Not Resolved]
  - Arthralgia [Not Recovered/Not Resolved]
  - Somnolence [Unknown]
  - Abdominal distension [Unknown]
  - Feeling abnormal [Unknown]
  - Musculoskeletal pain [Not Recovered/Not Resolved]
  - Abdominal pain [Unknown]

NARRATIVE: CASE EVENT DATE: 2018
